FAERS Safety Report 13727287 (Version 1)
Quarter: 2017Q3

REPORT INFORMATION
  Report Type: Report from Study
  Country: GB (occurrence: GB)
  Receive Date: 20170706
  Receipt Date: 20170706
  Transmission Date: 20171127
  Serious: Yes (Other)
  Sender: FDA-Public Use
  Company Number: GB-GILEAD-2017-0281710

PATIENT
  Age: 74 Year
  Sex: Male

DRUGS (2)
  1. RITUXIMAB. [Suspect]
     Active Substance: RITUXIMAB
     Indication: CHRONIC LYMPHOCYTIC LEUKAEMIA
     Dosage: UNK
     Route: 065
  2. IDELALISIB [Suspect]
     Active Substance: IDELALISIB
     Indication: CHRONIC LYMPHOCYTIC LEUKAEMIA
     Dosage: UNK
     Route: 065

REACTIONS (1)
  - Disease progression [Unknown]
